FAERS Safety Report 25591824 (Version 1)
Quarter: 2025Q3

REPORT INFORMATION
  Report Type: Report from Study
  Country: US (occurrence: US)
  Receive Date: 20250722
  Receipt Date: 20250722
  Transmission Date: 20251021
  Serious: No
  Sender: VANDA PHARMACEUTICALS
  Company Number: US-VANDA PHARMACEUTICALS, INC-2025TASUS007498

PATIENT
  Sex: Female

DRUGS (1)
  1. HETLIOZ LQ [Suspect]
     Active Substance: TASIMELTEON
     Indication: Insomnia
     Dosage: 3.1 MILLIGRAM, QD
     Route: 048

REACTIONS (2)
  - Irritability [Unknown]
  - Nightmare [Unknown]
